FAERS Safety Report 14386756 (Version 2)
Quarter: 2019Q3

REPORT INFORMATION
  Report Type: Spontaneous
  Country: US (occurrence: US)
  Receive Date: 20180115
  Receipt Date: 20190722
  Transmission Date: 20191004
  Serious: Yes (Other)
  Sender: FDA-Public Use
  Company Number: US-SA-2017SA115298

PATIENT
  Age: 48 Year
  Sex: Female

DRUGS (22)
  1. PROMETHAZINE [Concomitant]
     Active Substance: PROMETHAZINE HYDROCHLORIDE
     Dosage: UNK UNK,UNK
     Route: 065
     Dates: start: 2008
  2. CARISOPRODOL. [Concomitant]
     Active Substance: CARISOPRODOL
     Dosage: UNK UNK,UNK
     Route: 065
     Dates: start: 2011, end: 2015
  3. HYDROCODONE [Concomitant]
     Active Substance: HYDROCODONE
     Dosage: UNK UNK,UNK
     Route: 065
     Dates: start: 2011, end: 2015
  4. ACETAMINOPHEN. [Concomitant]
     Active Substance: ACETAMINOPHEN
     Dosage: UNK UNK,UNK
     Route: 065
     Dates: start: 2007
  5. ENOXAPARIN [Concomitant]
     Active Substance: ENOXAPARIN
     Dosage: UNK UNK,UNK
     Route: 065
     Dates: start: 2007
  6. BENZYLPENICILLIN [Concomitant]
     Active Substance: PENICILLIN G
     Dosage: UNK UNK,UNK
     Route: 065
     Dates: start: 2007
  7. CARISOPRODOL. [Concomitant]
     Active Substance: CARISOPRODOL
     Dosage: UNK UNK,UNK
     Route: 065
     Dates: start: 2011, end: 2015
  8. PROAIR HFA [Concomitant]
     Active Substance: ALBUTEROL SULFATE
     Dosage: UNK UNK,UNK
     Route: 065
     Dates: start: 2007
  9. AZITHROMYCIN ANHYDROUS. [Concomitant]
     Active Substance: AZITHROMYCIN ANHYDROUS
     Dosage: UNK UNK,UNK
     Route: 065
     Dates: start: 2011
  10. NAPROXEN. [Concomitant]
     Active Substance: NAPROXEN
     Dosage: UNK UNK,UNK
     Route: 065
     Dates: start: 2007
  11. AZITHROMYCIN ANHYDROUS. [Concomitant]
     Active Substance: AZITHROMYCIN ANHYDROUS
     Dosage: UNK UNK,UNK
     Route: 065
     Dates: start: 2007
  12. AZITHROMYCIN ANHYDROUS. [Concomitant]
     Active Substance: AZITHROMYCIN ANHYDROUS
     Dosage: UNK UNK,UNK
     Route: 065
     Dates: start: 2007
  13. AMOXICILLIN. [Concomitant]
     Active Substance: AMOXICILLIN
     Dosage: UNK UNK,UNK
     Route: 065
     Dates: start: 2007
  14. NASONEX [Concomitant]
     Active Substance: MOMETASONE FUROATE
     Dosage: UNK UNK,UNK
     Route: 065
     Dates: start: 2007
  15. CARBOPLATIN. [Concomitant]
     Active Substance: CARBOPLATIN
  16. TAXOTERE [Suspect]
     Active Substance: DOCETAXEL
     Dosage: 130 MG,Q3W
     Route: 051
     Dates: start: 20120612, end: 20120612
  17. PARAPLATIN [Concomitant]
     Active Substance: CARBOPLATIN
  18. PROMETHAZINE [Concomitant]
     Active Substance: PROMETHAZINE HYDROCHLORIDE
     Dosage: UNK UNK,UNK
     Route: 065
     Dates: start: 2007
  19. PROAIR HFA [Concomitant]
     Active Substance: ALBUTEROL SULFATE
     Dosage: UNK UNK,UNK
     Route: 065
     Dates: start: 2011
  20. CARISOPRODOL. [Concomitant]
     Active Substance: CARISOPRODOL
     Dosage: UNK UNK,UNK
     Route: 065
     Dates: start: 2007
  21. TAXOTERE [Suspect]
     Active Substance: DOCETAXEL
     Indication: BREAST CANCER FEMALE
     Dosage: 130 MG,Q3W
     Route: 051
     Dates: start: 20120227, end: 20120227
  22. HYDROCODONE [Concomitant]
     Active Substance: HYDROCODONE
     Dosage: UNK UNK,UNK
     Route: 065
     Dates: start: 2007

REACTIONS (3)
  - Alopecia [Not Recovered/Not Resolved]
  - Psychological trauma [Unknown]
  - Emotional distress [Unknown]

NARRATIVE: CASE EVENT DATE: 2012
